FAERS Safety Report 5842644-6 (Version None)
Quarter: 2008Q3

REPORT INFORMATION
  Report Type: 
  Country: None (occurrence: None)
  Receive Date: 20080812
  Receipt Date: 20080806
  Transmission Date: 20090109
  Serious: Yes (Other)
  Sender: FDA-Public Use
  Company Number: DE-PFIZER INC-2008065829

PATIENT
  Sex: Female

DRUGS (8)
  1. SORTIS [Suspect]
     Indication: LIPID METABOLISM DISORDER
     Route: 048
     Dates: start: 20071217, end: 20080219
  2. EUTHYROX [Concomitant]
  3. DIOVAN HCT [Concomitant]
  4. ISCOVER [Concomitant]
  5. LERCANIDIPINE HYDROCHLORIDE [Concomitant]
  6. CONCOR COR [Concomitant]
  7. ROCORNAL [Concomitant]
  8. LEVOTHYROXINE SODIUM [Concomitant]
     Indication: HYPOTHYROIDISM

REACTIONS (6)
  - ASTHENIA [None]
  - COORDINATION ABNORMAL [None]
  - DISTURBANCE IN ATTENTION [None]
  - FATIGUE [None]
  - MYALGIA [None]
  - VISION BLURRED [None]
